FAERS Safety Report 7675173-8 (Version None)
Quarter: 2011Q3

REPORT INFORMATION
  Report Type: 
  Country: None (occurrence: None)
  Receive Date: 20110810
  Receipt Date: 20110803
  Transmission Date: 20111222
  Serious: Yes (Death, Life-Threatening, Hospitalization)
  Sender: FDA-Public Use
  Company Number: DE-JNJFOC-20110801375

PATIENT
  Age: 85 Year
  Sex: Female

DRUGS (9)
  1. PLAVIX [Concomitant]
     Route: 048
     Dates: end: 20050126
  2. DOMINAL [Suspect]
     Indication: PRODUCT USED FOR UNKNOWN INDICATION
     Route: 048
     Dates: end: 20050126
  3. FUROSEMIDE [Concomitant]
     Route: 048
     Dates: end: 20050126
  4. ZOLOFT [Concomitant]
     Route: 048
     Dates: end: 20050126
  5. RISPERDAL [Suspect]
     Indication: PRODUCT USED FOR UNKNOWN INDICATION
     Dosage: 1 MG SINCE MORE THAN 4 MONTHS
     Route: 048
     Dates: end: 20050126
  6. PANTOPRAZOLE [Concomitant]
     Route: 048
     Dates: end: 20050126
  7. CIBACEN [Concomitant]
     Route: 048
     Dates: end: 20050126
  8. K CL TAB [Concomitant]
     Route: 048
     Dates: end: 20050126
  9. LANITOP [Concomitant]
     Route: 048
     Dates: end: 20050126

REACTIONS (2)
  - CARDIAC FAILURE [None]
  - DEMENTIA [None]
